FAERS Safety Report 4672649-2 (Version None)
Quarter: 2005Q2

REPORT INFORMATION
  Report Type: 
  Country: None (occurrence: None)
  Receive Date: 20050524
  Receipt Date: 20050118
  Transmission Date: 20051028
  Serious: Yes (Hospitalization)
  Sender: FDA-Public Use
  Company Number: FR-MERCK-0501FRA00052

PATIENT
  Age: 60 Year
  Sex: Female

DRUGS (3)
  1. ZOCOR [Suspect]
     Route: 048
     Dates: end: 20041201
  2. ZOCOR [Suspect]
     Route: 048
     Dates: start: 20041201
  3. RALOXIFENE HYDROCHLORIDE [Suspect]
     Route: 048
     Dates: start: 20041201, end: 20041230

REACTIONS (1)
  - TRANSIENT ISCHAEMIC ATTACK [None]
